FAERS Safety Report 10204964 (Version 1)
Quarter: 2014Q2

REPORT INFORMATION
  Report Type: Spontaneous
  Country: IT (occurrence: US)
  Receive Date: 20140529
  Receipt Date: 20140529
  Transmission Date: 20141212
  Serious: Yes (Life-Threatening, Other)
  Sender: FDA-Public Use
  Company Number: IT-ASTRAZENECA-2014SE35895

PATIENT
  Age: 77 Year
  Sex: Female

DRUGS (11)
  1. BLOPRESS [Suspect]
     Indication: HYPERTENSION
     Route: 048
     Dates: start: 20131001, end: 20140307
  2. ALDACTONE [Interacting]
     Indication: HYPERTENSION
     Route: 048
     Dates: start: 20131001, end: 20140307
  3. LANOXIN [Interacting]
     Indication: ATRIAL FIBRILLATION
     Route: 048
     Dates: start: 20100101, end: 20140307
  4. PANTOPRAZOLE [Concomitant]
  5. LORAZEPAM [Concomitant]
     Dosage: UNK
  6. COUMADIN [Concomitant]
     Indication: ATRIAL FIBRILLATION
     Dosage: UNK
     Dates: start: 2009
  7. LASIX [Concomitant]
  8. DELTACORTENE [Concomitant]
  9. PLAQUENIL [Concomitant]
  10. MIRAPEXIN [Concomitant]
  11. LAROXYL [Concomitant]

REACTIONS (5)
  - Drug interaction [Recovered/Resolved]
  - Atrioventricular block complete [Recovered/Resolved]
  - Metabolic acidosis [Recovered/Resolved]
  - Hyperkalaemia [Recovered/Resolved]
  - Renal failure acute [Recovered/Resolved]
